FAERS Safety Report 25823942 (Version 1)
Quarter: 2025Q3

REPORT INFORMATION
  Report Type: Spontaneous
  Country: JP (occurrence: JP)
  Receive Date: 20250919
  Receipt Date: 20250919
  Transmission Date: 20251021
  Serious: Yes (Other)
  Sender: ROCHE
  Company Number: JP-CHUGAI-2025029564

PATIENT
  Sex: Male

DRUGS (2)
  1. HEMLIBRA [Suspect]
     Active Substance: EMICIZUMAB-KXWH
     Indication: Factor VIII deficiency
     Dosage: 100 MILLIGRAM, ONCE/WEEK
     Route: 058
  2. HEMLIBRA [Suspect]
     Active Substance: EMICIZUMAB-KXWH
     Route: 058

REACTIONS (6)
  - Abdominal mass [Unknown]
  - Dizziness postural [Unknown]
  - Headache [Unknown]
  - Vision blurred [Unknown]
  - Pyrexia [Unknown]
  - Insomnia [Unknown]
